FAERS Safety Report 7338257-X (Version None)
Quarter: 2011Q1

REPORT INFORMATION
  Report Type: 
  Country: None (occurrence: None)
  Receive Date: 20110308
  Receipt Date: 20110226
  Transmission Date: 20110831
  Serious: Yes (Hospitalization)
  Sender: FDA-Public Use
  Company Number: US-ELI_LILLY_AND_COMPANY-US201012002930

PATIENT
  Sex: Male

DRUGS (6)
  1. GEMCITABINE HYDROCHLORIDE [Suspect]
     Dosage: 1332 MG, UNKNOWN
     Route: 065
  2. PACLITAXEL [Suspect]
     Dosage: 170 MG, UNKNOWN
     Route: 065
  3. FONDAPARINUX [Concomitant]
     Indication: DEEP VEIN THROMBOSIS
  4. GEMCITABINE HYDROCHLORIDE [Suspect]
     Indication: PANCREATIC CARCINOMA
     Dosage: 2200 MG, UNKNOWN
     Route: 065
     Dates: start: 20101018, end: 20101221
  5. PACLITAXEL [Suspect]
     Indication: PANCREATIC CARCINOMA
     Dosage: 280 MG, UNKNOWN
     Route: 065
     Dates: start: 20101018, end: 20101221
  6. DALTEPARIN SODIUM [Concomitant]
     Indication: DEEP VEIN THROMBOSIS

REACTIONS (1)
  - DEEP VEIN THROMBOSIS [None]
